FAERS Safety Report 9157673 (Version 1)
Quarter: 2013Q1

REPORT INFORMATION
  Report Type: Spontaneous
  Country: GB (occurrence: None)
  Receive Date: 20130212
  Receipt Date: 20130212
  Transmission Date: 20140127
  Serious: Yes (Hospitalization)
  Sender: FDA-Public Use
  Company Number: 2013-00184

PATIENT
  Age: 76 Year
  Sex: Male

DRUGS (3)
  1. LEVETIRACETAM (UNKNOWN) (LEVETIRACETAM) [Suspect]
     Indication: POST-TRAUMATIC EPILEPSY
     Dosage: 1500 MG (750 MG, 2 IN 1 D), UNKNOWN?(500 MG. UNKNOWN), UNKNOWN
  2. CLOBAZAM [Suspect]
     Dosage: UNKNOWN (UNKNOWN, UNKNOWN), UNKNOWN
  3. SODIUM VALPROATE (UNKNOWN) [Suspect]
     Dosage: UNKNOWN (UNKNOWN, UNKNOWN), UNKNOWN

REACTIONS (6)
  - Circadian rhythm sleep disorder [None]
  - Agitation [None]
  - Restlessness [None]
  - Aggression [None]
  - Hyponatraemia [None]
  - Adverse drug reaction [None]
